FAERS Safety Report 20192986 (Version 1)
Quarter: 2021Q4

REPORT INFORMATION
  Report Type: Spontaneous
  Country: US (occurrence: US)
  Receive Date: 20211216
  Receipt Date: 20211216
  Transmission Date: 20220304
  Serious: No
  Sender: FDA-Public Use
  Company Number: US-JNJFOC-20211217082

PATIENT
  Age: 61 Year
  Sex: Female

DRUGS (3)
  1. STELARA [Suspect]
     Active Substance: USTEKINUMAB
     Indication: Crohn^s disease
     Route: 058
     Dates: start: 20210712
  2. STELARA [Suspect]
     Active Substance: USTEKINUMAB
  3. HUMIRA [Suspect]
     Active Substance: ADALIMUMAB
     Indication: Crohn^s disease
     Route: 065

REACTIONS (1)
  - Sinusitis [Unknown]
